FAERS Safety Report 4442135-3 (Version None)
Quarter: 2004Q3

REPORT INFORMATION
  Report Type: 
  Country: None (occurrence: None)
  Receive Date: 20040903
  Receipt Date: 20040721
  Transmission Date: 20050211
  Serious: Yes (Other)
  Sender: FDA-Public Use
  Company Number: 2004UW15390

PATIENT
  Age: 77 Year
  Sex: Female
  Weight: 78.4723 kg

DRUGS (5)
  1. CRESTOR [Suspect]
     Indication: BLOOD CHOLESTEROL INCREASED
  2. MULTIVITAMIN [Concomitant]
  3. CALCIUM [Concomitant]
  4. FIBER [Concomitant]
  5. PRILOSEC [Concomitant]

REACTIONS (3)
  - PAIN [None]
  - PAIN IN EXTREMITY [None]
  - UNEXPECTED THERAPEUTIC DRUG EFFECT [None]
